FAERS Safety Report 9603010 (Version 2)
Quarter: 2013Q4

REPORT INFORMATION
  Report Type: Report from Study
  Country: US (occurrence: US)
  Receive Date: 20131007
  Receipt Date: 20131112
  Transmission Date: 20140711
  Serious: Yes (Hospitalization, Other)
  Sender: FDA-Public Use
  Company Number: US-CELGENEUS-163-21880-13094090

PATIENT
  Age: 65 Year
  Sex: Male
  Weight: 93 kg

DRUGS (24)
  1. REVLIMID [Suspect]
     Indication: DIFFUSE LARGE B-CELL LYMPHOMA
     Dosage: 11.9048 MILLIGRAM
     Route: 048
     Dates: start: 20130624
  2. REVLIMID [Suspect]
     Dosage: 11.9048 MILLIGRAM
     Route: 048
     Dates: start: 20130917, end: 20130925
  3. RITUXIMAB [Suspect]
     Indication: DIFFUSE LARGE B-CELL LYMPHOMA
     Dosage: 17.8571 MILLIGRAM/SQ. METER
     Route: 041
     Dates: start: 20130624
  4. RITUXIMAB [Suspect]
     Dosage: 17.8571 MILLIGRAM/SQ. METER
     Route: 041
     Dates: start: 20130917, end: 20130917
  5. CYCLOPHOSPHAMIDE [Suspect]
     Indication: DIFFUSE LARGE B-CELL LYMPHOMA
     Dosage: 35.7143 MILLIGRAM/SQ. METER
     Route: 041
     Dates: start: 20130624
  6. CYCLOPHOSPHAMIDE [Suspect]
     Dosage: 35.7143 MILLIGRAM/SQ. METER
     Route: 041
     Dates: start: 20130917, end: 20130917
  7. DOXORUBICIN [Suspect]
     Indication: DIFFUSE LARGE B-CELL LYMPHOMA
     Dosage: 2.381 MILLIGRAM/SQ. METER
     Route: 041
     Dates: start: 20130624
  8. DOXORUBICIN [Suspect]
     Dosage: 2.381 MILLIGRAM/SQ. METER
     Route: 041
     Dates: start: 20130917, end: 20130917
  9. VINCRISTINE [Suspect]
     Indication: DIFFUSE LARGE B-CELL LYMPHOMA
     Dosage: .0667 MILLIGRAM/SQ. METER
     Route: 041
     Dates: start: 20130624
  10. VINCRISTINE [Suspect]
     Dosage: .0667 MILLIGRAM/SQ. METER
     Route: 041
     Dates: start: 20130917, end: 20130917
  11. PREDNISONE [Suspect]
     Indication: DIFFUSE LARGE B-CELL LYMPHOMA
     Dosage: 23.8095 MILLIGRAM/SQ. METER
     Route: 048
     Dates: start: 20130624
  12. PREDNISONE [Suspect]
     Dosage: 50 MILLIGRAM
     Route: 048
     Dates: start: 20130917, end: 20130921
  13. PRISTIQ [Concomitant]
     Indication: PRODUCT USED FOR UNKNOWN INDICATION
     Dosage: 100 MILLIGRAM
     Route: 048
     Dates: start: 20130923
  14. SENNA [Concomitant]
     Indication: PRODUCT USED FOR UNKNOWN INDICATION
     Dosage: 1 TABLET
     Route: 048
     Dates: start: 20130923
  15. SENNA [Concomitant]
     Dosage: 2 TABLET
     Route: 048
     Dates: start: 20130923
  16. BUPROPION [Concomitant]
     Indication: PRODUCT USED FOR UNKNOWN INDICATION
     Dosage: 200 MILLIGRAM
     Route: 048
     Dates: start: 20130923
  17. HYDROCHLOROTHIAZIDE [Concomitant]
     Indication: HYPERTENSION
     Dosage: 25 MILLIGRAM
     Route: 048
     Dates: start: 20130923
  18. MIRTAZAPINE [Concomitant]
     Indication: PRODUCT USED FOR UNKNOWN INDICATION
     Dosage: 30 MILLIGRAM
     Route: 048
     Dates: start: 20130923
  19. SIMVASTATIN [Concomitant]
     Indication: PRODUCT USED FOR UNKNOWN INDICATION
     Dosage: 80 MILLIGRAM
     Route: 048
     Dates: start: 20130923
  20. SIMVASTATIN [Concomitant]
     Dosage: 20 MILLIGRAM
  21. ZOLPIDEM [Concomitant]
     Indication: PRODUCT USED FOR UNKNOWN INDICATION
     Route: 048
     Dates: start: 20130923
  22. FISH OIL [Concomitant]
     Indication: PRODUCT USED FOR UNKNOWN INDICATION
     Dosage: 1000 MILLIGRAM
     Route: 048
  23. VENLAFAXINE [Concomitant]
     Indication: PRODUCT USED FOR UNKNOWN INDICATION
     Dosage: 100 MILLIGRAM
     Route: 065
  24. COUMADIN [Concomitant]
     Indication: PRODUCT USED FOR UNKNOWN INDICATION
     Dosage: 4 MILLIGRAM
     Route: 065
     Dates: start: 20130927

REACTIONS (3)
  - Atrial flutter [Recovered/Resolved]
  - Neutrophil count decreased [Recovered/Resolved]
  - Syncope [Recovered/Resolved]
